FAERS Safety Report 9183076 (Version 1)
Quarter: 2013Q1

REPORT INFORMATION
  Report Type: Spontaneous
  Country: US (occurrence: US)
  Receive Date: 20130322
  Receipt Date: 20130322
  Transmission Date: 20140127
  Serious: No
  Sender: FDA-Public Use
  Company Number: US-BRISTOL-MYERS SQUIBB COMPANY-16883951

PATIENT
  Age: 52 Year
  Sex: Female
  Weight: 79.8 kg

DRUGS (7)
  1. ERBITUX [Suspect]
     Indication: COLON CANCER METASTATIC
     Route: 042
     Dates: start: 20120821, end: 20120821
  2. DIPHENHYDRAMINE [Concomitant]
     Indication: PREMEDICATION
     Route: 042
  3. PALONOSETRON [Concomitant]
     Indication: PREMEDICATION
     Route: 042
  4. DEXAMETHASONE [Concomitant]
     Indication: PREMEDICATION
     Route: 042
  5. FAMOTIDINE [Concomitant]
     Indication: PREMEDICATION
     Route: 042
  6. LORAZEPAM [Concomitant]
     Indication: PREMEDICATION
     Route: 042
     Dates: start: 20120821
  7. IRINOTECAN [Concomitant]
     Indication: CHEMOTHERAPY
     Route: 042

REACTIONS (1)
  - Drug administration error [Unknown]
